FAERS Safety Report 10157502 (Version 1)
Quarter: 2014Q2

REPORT INFORMATION
  Report Type: Spontaneous
  Country: US (occurrence: US)
  Receive Date: 20140507
  Receipt Date: 20140507
  Transmission Date: 20141212
  Serious: No
  Sender: FDA-Public Use
  Company Number: US-009507513-1405USA001676

PATIENT
  Sex: Male
  Weight: 72.56 kg

DRUGS (1)
  1. NUVARING [Suspect]
     Dosage: UNK
     Route: 067

REACTIONS (3)
  - Genital rash [Unknown]
  - Genital discomfort [Unknown]
  - Genital injury [Unknown]
